FAERS Safety Report 9766104 (Version 1)
Quarter: 2013Q4

REPORT INFORMATION
  Report Type: Spontaneous
  Country: US (occurrence: US)
  Receive Date: 20131217
  Receipt Date: 20131217
  Transmission Date: 20140711
  Serious: No
  Sender: FDA-Public Use
  Company Number: US-GLAXOSMITHKLINE-A1018554A

PATIENT
  Age: 67 Year
  Sex: Male
  Weight: 54.1 kg

DRUGS (7)
  1. VOTRIENT [Suspect]
     Indication: METASTATIC RENAL CELL CARCINOMA
     Dosage: 800MG PER DAY
     Route: 048
     Dates: start: 20121215, end: 20130319
  2. KEPPRA [Concomitant]
  3. DILANTIN [Concomitant]
  4. HALDOL [Concomitant]
  5. GLIPIZIDE [Concomitant]
  6. FAMOTIDINE [Concomitant]
  7. INSULIN [Concomitant]

REACTIONS (2)
  - Haemoptysis [Recovered/Resolved]
  - Neoplasm progression [Unknown]
